FAERS Safety Report 5259939-X (Version None)
Quarter: 2007Q1

REPORT INFORMATION
  Report Type: 
  Country: None (occurrence: None)
  Receive Date: 20070309
  Receipt Date: 20070228
  Transmission Date: 20070707
  Serious: Yes (Hospitalization)
  Sender: FDA-Public Use
  Company Number: J200605024

PATIENT
  Age: 60 Year
  Sex: Female

DRUGS (6)
  1. AMOXICILLIN TRIHYDRATE [Suspect]
     Indication: PHARYNGITIS
     Dosage: 250MG THREE TIMES PER DAY
     Route: 048
     Dates: start: 20061110, end: 20061110
  2. LOXONIN [Concomitant]
     Indication: PHARYNGITIS
     Dosage: .4G THREE TIMES PER DAY
     Route: 048
     Dates: start: 20061110, end: 20061110
  3. CHLORPHENIRAMINE MALEATE [Concomitant]
     Indication: PHARYNGITIS
     Dosage: 1G PER DAY
     Route: 048
     Dates: start: 20061110, end: 20061110
  4. RESPLEN [Concomitant]
     Indication: PHARYNGITIS
     Dosage: .7G PER DAY
     Route: 048
     Dates: start: 20061110, end: 20061110
  5. TANATRIL [Concomitant]
     Indication: HYPERTENSION
     Dosage: 5MG FOUR TIMES PER DAY
     Route: 048
     Dates: start: 20061011
  6. CAFFEINE [Concomitant]
     Indication: PHARYNGITIS
     Dosage: .1G THREE TIMES PER DAY
     Route: 048
     Dates: start: 20061110, end: 20061110

REACTIONS (4)
  - DRUG ERUPTION [None]
  - ERYTHEMA [None]
  - PYREXIA [None]
  - RASH [None]
